FAERS Safety Report 7153278-8 (Version None)
Quarter: 2010Q4

REPORT INFORMATION
  Report Type: 
  Country: None (occurrence: None)
  Receive Date: 20101130
  Receipt Date: 20101122
  Transmission Date: 20110411
  Serious: Yes (Death, Other)
  Sender: FDA-Public Use
  Company Number: 2010US004154

PATIENT
  Age: 33 Year
  Sex: Male

DRUGS (1)
  1. PROGRAF [Suspect]
     Indication: RENAL TRANSPLANT
     Dates: end: 20100401

REACTIONS (5)
  - CARDIAC ARREST [None]
  - DIABETES MELLITUS [None]
  - DIALYSIS [None]
  - MYOCARDIAL INFARCTION [None]
  - POSTOPERATIVE RENAL FAILURE [None]
